FAERS Safety Report 6143008-0 (Version None)
Quarter: 2009Q2

REPORT INFORMATION
  Report Type: 
  Country: None (occurrence: None)
  Receive Date: 20090403
  Receipt Date: 20090326
  Transmission Date: 20091009
  Serious: Yes (Other)
  Sender: FDA-Public Use
  Company Number: US-ELI_LILLY_AND_COMPANY-US200903006879

PATIENT
  Sex: Male

DRUGS (4)
  1. CIALIS [Suspect]
     Dosage: 10 MG, UNKNOWN
     Route: 065
  2. CIALIS [Suspect]
     Dosage: 2.5 MG, DAILY (1/D)
     Route: 065
  3. CIALIS [Suspect]
     Dosage: 5 MG, DAILY (1/D)
     Route: 065
  4. L-ARGININE HYDROCHLORIDE [Concomitant]
     Dosage: UNK, UNKNOWN
     Route: 065

REACTIONS (10)
  - BLOOD TESTOSTERONE DECREASED [None]
  - DISTURBANCE IN SEXUAL AROUSAL [None]
  - DRUG INEFFECTIVE [None]
  - ERECTILE DYSFUNCTION [None]
  - HEADACHE [None]
  - NEUROPATHY PERIPHERAL [None]
  - ORGASM ABNORMAL [None]
  - PENIS DISORDER [None]
  - SPINAL CORD INJURY [None]
  - SPINAL DISORDER [None]
